FAERS Safety Report 10740205 (Version 1)
Quarter: 2015Q1

REPORT INFORMATION
  Report Type: Spontaneous
  Country: IT (occurrence: IT)
  Receive Date: 20150127
  Receipt Date: 20150127
  Transmission Date: 20150721
  Serious: Yes (Other)
  Sender: FDA-Public Use
  Company Number: IT-ACCORD-028218

PATIENT
  Sex: Male

DRUGS (1)
  1. DOCETAXEL. [Suspect]
     Active Substance: DOCETAXEL
     Indication: METASTASES TO BONE
     Dosage: ON DAYS 1, 8, 15, 22, AND 29 IN A 6-WEEK CYCLE.
     Route: 042
     Dates: start: 201107

REACTIONS (9)
  - Dry eye [Unknown]
  - Anaemia [Unknown]
  - Nail disorder [Unknown]
  - Performance status decreased [Recovering/Resolving]
  - Renal impairment [Recovering/Resolving]
  - Neutropenia [Unknown]
  - Thrombocytopenia [Unknown]
  - Off label use [Unknown]
  - Fatigue [Unknown]
